FAERS Safety Report 23799027 (Version 1)
Quarter: 2024Q2

REPORT INFORMATION
  Report Type: Report from Study
  Country: US (occurrence: US)
  Receive Date: 20240430
  Receipt Date: 20240430
  Transmission Date: 20240715
  Serious: Yes (Death, Other)
  Sender: FDA-Public Use
  Company Number: US-TAKEDA-2023TUS039259

PATIENT
  Age: 2 Year
  Sex: Male

DRUGS (3)
  1. IDURSULFASE [Suspect]
     Active Substance: IDURSULFASE
     Indication: Product used for unknown indication
     Dosage: UNK
     Route: 042
     Dates: start: 20230414
  2. IDURSULFASE [Suspect]
     Active Substance: IDURSULFASE
     Dosage: UNK
     Route: 042
     Dates: start: 20230421
  3. IDURSULFASE [Suspect]
     Active Substance: IDURSULFASE
     Dosage: UNK
     Route: 042

REACTIONS (11)
  - Death [Fatal]
  - Blood pressure increased [Recovered/Resolved]
  - Poor venous access [Recovered/Resolved]
  - Respiratory tract infection [Recovered/Resolved]
  - COVID-19 [Recovered/Resolved]
  - Influenza [Recovered/Resolved]
  - Adenovirus infection [Recovered/Resolved]
  - Bacterial infection [Recovered/Resolved]
  - Upper respiratory tract infection [Recovered/Resolved]
  - Urinary glycosaminoglycans increased [Recovered/Resolved]
  - Product dose omission issue [Recovered/Resolved]

NARRATIVE: CASE EVENT DATE: 20240401
